FAERS Safety Report 10235810 (Version 1)
Quarter: 2014Q2

REPORT INFORMATION
  Report Type: Spontaneous
  Country: US (occurrence: US)
  Receive Date: 20140613
  Receipt Date: 20140613
  Transmission Date: 20141212
  Serious: No
  Sender: FDA-Public Use
  Company Number: US-BAYER-2014-088690

PATIENT
  Age: 24 Year
  Sex: Male
  Weight: 100 kg

DRUGS (2)
  1. ALEVE TABLET [Suspect]
     Indication: ANALGESIC THERAPY
     Dosage: UNK UNK, PRN
     Route: 048
  2. ALEVE TABLET [Suspect]
     Indication: NECK PAIN
     Dosage: 4 DF, UNK
     Route: 048
     Dates: start: 20140611

REACTIONS (1)
  - Extra dose administered [None]
